FAERS Safety Report 4943624-5 (Version None)
Quarter: 2006Q1

REPORT INFORMATION
  Report Type: 
  Country: None (occurrence: None)
  Receive Date: 20060310
  Receipt Date: 20060227
  Transmission Date: 20060701
  Serious: Yes (Death, Hospitalization)
  Sender: FDA-Public Use
  Company Number: B0414567A

PATIENT
  Age: 82 Year
  Sex: Male

DRUGS (9)
  1. PAXIL [Suspect]
     Indication: DEPRESSION
     Dosage: 15 MG/ ORAL
     Route: 048
  2. BUDESONIDE [Concomitant]
  3. FORMOTEROL [Concomitant]
  4. AMLODIPINE [Concomitant]
  5. IRBESARTAN [Concomitant]
  6. HYDROCHLOROTHIAZIDE [Concomitant]
  7. ASPIRIN [Concomitant]
  8. MOLSIDOMINE [Concomitant]
  9. DONEPEZIL HCL [Concomitant]

REACTIONS (1)
  - GASTRIC HAEMORRHAGE [None]
